FAERS Safety Report 20978417 (Version 2)
Quarter: 2022Q2

REPORT INFORMATION
  Report Type: Spontaneous
  Country: US (occurrence: US)
  Receive Date: 20220618
  Receipt Date: 20220627
  Transmission Date: 20220721
  Serious: No
  Sender: FDA-Public Use
  Company Number: US-SANOFI-01143918

PATIENT
  Sex: Female

DRUGS (2)
  1. LANTUS [Suspect]
     Active Substance: INSULIN GLARGINE
     Indication: Diabetes mellitus
  2. NOVOLOG [Concomitant]
     Active Substance: INSULIN ASPART

REACTIONS (6)
  - Chills [Recovering/Resolving]
  - Malaise [Recovering/Resolving]
  - Gait disturbance [Recovering/Resolving]
  - Body temperature decreased [Recovering/Resolving]
  - Eye disorder [Recovering/Resolving]
  - Blood glucose abnormal [Recovering/Resolving]
